FAERS Safety Report 5969267-2 (Version None)
Quarter: 2008Q4

REPORT INFORMATION
  Report Type: 
  Country: None (occurrence: None)
  Receive Date: 20081126
  Receipt Date: 20081118
  Transmission Date: 20090506
  Serious: Yes (Hospitalization)
  Sender: FDA-Public Use
  Company Number: JP-ABBOTT-08P-087-0489798-00

PATIENT
  Age: 57 Year
  Sex: Male

DRUGS (8)
  1. LEUPROLIDE ACETATE [Suspect]
     Indication: PROSTATE CANCER STAGE IV
     Route: 058
     Dates: start: 20061024
  2. OXYCODONE HCL [Suspect]
     Indication: CANCER PAIN
     Route: 048
     Dates: start: 20080901
  3. BICALUTAMIDE [Concomitant]
     Indication: PROSTATE CANCER STAGE IV
     Route: 048
     Dates: start: 20061011, end: 20071119
  4. FLUTAMIDE [Concomitant]
     Indication: PROSTATE CANCER STAGE IV
     Route: 048
     Dates: start: 20071120, end: 20080821
  5. DOCETAXEL [Concomitant]
     Indication: PROSTATE CANCER STAGE IV
     Dosage: WEEKLY (3 TIMES TOTAL)
     Route: 042
     Dates: start: 20080822, end: 20080926
  6. BETAMETHASONE [Concomitant]
     Indication: PROSTATE CANCER STAGE IV
     Route: 048
     Dates: start: 20080926
  7. ITAVASTATIN CALCIUM [Concomitant]
     Indication: HYPERCHOLESTEROLAEMIA
     Route: 048
     Dates: start: 20070828, end: 20071031
  8. ATORVASTATIN CALCIUM [Concomitant]
     Indication: HYPERCHOLESTEROLAEMIA
     Route: 048
     Dates: start: 20071120

REACTIONS (4)
  - CANCER PAIN [None]
  - DYSURIA [None]
  - NAUSEA [None]
  - POLLAKIURIA [None]
